FAERS Safety Report 12503627 (Version 1)
Quarter: 2016Q2

REPORT INFORMATION
  Report Type: Spontaneous
  Country: US (occurrence: None)
  Receive Date: 20160627
  Receipt Date: 20160627
  Transmission Date: 20160815
  Serious: No
  Sender: FDA-Public Use
  Company Number: None

PATIENT
  Age: 49 Year
  Sex: Female
  Weight: 61.24 kg

DRUGS (9)
  1. TYLENOL [Concomitant]
     Active Substance: ACETAMINOPHEN
  2. MOTRIN [Concomitant]
     Active Substance: IBUPROFEN
  3. DICLOFEN POT MYLAN GENERIC FOR C, 50 MG [Suspect]
     Active Substance: DICLOFENAC POTASSIUM
     Indication: ROAD TRAFFIC ACCIDENT
     Route: 048
     Dates: start: 20160621, end: 20160623
  4. MULITVITAMIN [Concomitant]
  5. ESSENTIAL OILS. [Concomitant]
     Active Substance: ESSENTIAL OILS
  6. LAVENDER [Concomitant]
  7. ALEVE [Concomitant]
     Active Substance: NAPROXEN SODIUM
  8. DICLOFEN POT MYLAN GENERIC FOR C, 50 MG [Suspect]
     Active Substance: DICLOFENAC POTASSIUM
     Indication: INFLAMMATION
     Route: 048
     Dates: start: 20160621, end: 20160623
  9. DICLOFEN POT MYLAN GENERIC FOR C, 50 MG [Suspect]
     Active Substance: DICLOFENAC POTASSIUM
     Indication: PAIN
     Route: 048
     Dates: start: 20160621, end: 20160623

REACTIONS (9)
  - Pharyngeal erythema [None]
  - Hyperhidrosis [None]
  - Discomfort [None]
  - Blister [None]
  - Dyspnoea [None]
  - Pruritus [None]
  - Blood pressure increased [None]
  - Rash [None]
  - Inflammation [None]

NARRATIVE: CASE EVENT DATE: 20160623
